FAERS Safety Report 14828473 (Version 2)
Quarter: 2020Q1

REPORT INFORMATION
  Report Type: Spontaneous
  Country: US (occurrence: US)
  Receive Date: 20180430
  Receipt Date: 20200318
  Transmission Date: 20200409
  Serious: No
  Sender: FDA-Public Use
  Company Number: US-GUERBET-US-20180064

PATIENT
  Age: 39 Year
  Sex: Female

DRUGS (4)
  1. LIPIODOL [Suspect]
     Active Substance: ETHIODIZED OIL
     Indication: HYSTEROSALPINGOGRAM
     Dosage: LESS THAN 10 ML
     Route: 015
     Dates: start: 20171218, end: 20171218
  2. SYNTHROID [Concomitant]
     Active Substance: LEVOTHYROXINE SODIUM
     Indication: HYPOTHYROIDISM
     Route: 048
  3. PROGESTERONE. [Concomitant]
     Active Substance: PROGESTERONE
     Indication: PREGNANCY
     Route: 067
  4. CLOMID [Concomitant]
     Active Substance: CLOMIPHENE CITRATE
     Indication: INFERTILITY
     Route: 065

REACTIONS (2)
  - Therapeutic response unexpected [Recovered/Resolved]
  - Maternal exposure before pregnancy [Recovered/Resolved]
